FAERS Safety Report 5584759-6 (Version None)
Quarter: 2008Q1

REPORT INFORMATION
  Report Type: 
  Country: None (occurrence: None)
  Receive Date: 20080103
  Receipt Date: 20071205
  Transmission Date: 20080703
  Serious: Yes (Other)
  Sender: FDA-Public Use
  Company Number: 805#8#2007-00064

PATIENT
  Age: 28 Year
  Sex: Female

DRUGS (7)
  1. ALPROSTADIL [Suspect]
     Indication: DRUG USE FOR UNKNOWN INDICATION
     Dosage: 500 MCG INTRAVENOUS DRIP, 60 MCG INTRAVENOUS DRIP, 2 MG INTRAVENOUS DRIP
     Route: 041
     Dates: start: 20070301, end: 20070301
  2. ALPROSTADIL [Suspect]
     Indication: DRUG USE FOR UNKNOWN INDICATION
     Dosage: 500 MCG INTRAVENOUS DRIP, 60 MCG INTRAVENOUS DRIP, 2 MG INTRAVENOUS DRIP
     Route: 041
     Dates: start: 20070301, end: 20070301
  3. ALPROSTADIL [Suspect]
     Indication: DRUG USE FOR UNKNOWN INDICATION
     Dosage: 500 MCG INTRAVENOUS DRIP, 60 MCG INTRAVENOUS DRIP, 2 MG INTRAVENOUS DRIP
     Route: 041
     Dates: start: 20070301, end: 20070301
  4. GABEXATE MESILATE (GABEXATE MESILATE) [Suspect]
     Indication: DRUG USE FOR UNKNOWN INDICATION
     Dosage: 2 MG
     Dates: start: 20070301
  5. TACROLIMUS [Concomitant]
  6. MYCOPHENOLATE MOFETIL [Concomitant]
  7. MARVELON (DESOGESTREL, ETHINYLESTRADIOL) [Concomitant]

REACTIONS (4)
  - HAEMODIALYSIS [None]
  - HAEMOLYTIC ANAEMIA [None]
  - HAEMOLYTIC URAEMIC SYNDROME [None]
  - THROMBOTIC THROMBOCYTOPENIC PURPURA [None]
